FAERS Safety Report 25329936 (Version 1)
Quarter: 2025Q2

REPORT INFORMATION
  Report Type: Spontaneous
  Country: US (occurrence: US)
  Receive Date: 20250519
  Receipt Date: 20250519
  Transmission Date: 20250717
  Serious: Yes (Hospitalization, Other)
  Sender: JOHNSON AND JOHNSON
  Company Number: US-JNJFOC-20250509997

PATIENT
  Age: 81 Year
  Sex: Male

DRUGS (1)
  1. CARVYKTI [Suspect]
     Active Substance: CILTACABTAGENE AUTOLEUCEL
     Indication: Product used for unknown indication
     Dates: start: 20250424

REACTIONS (3)
  - Intervertebral disc degeneration [Unknown]
  - Sciatica [Unknown]
  - Mastoiditis [Unknown]

NARRATIVE: CASE EVENT DATE: 20250507
